FAERS Safety Report 15658508 (Version 3)
Quarter: 2019Q1

REPORT INFORMATION
  Report Type: Report from Study
  Country: MX (occurrence: MX)
  Receive Date: 20181126
  Receipt Date: 20190107
  Transmission Date: 20190417
  Serious: Yes (Death, Other)
  Sender: FDA-Public Use
  Company Number: PHHY2018MX164033

PATIENT
  Sex: Female
  Weight: 63 kg

DRUGS (1)
  1. AFINITOR [Suspect]
     Active Substance: EVEROLIMUS
     Indication: BREAST CANCER
     Dosage: 1 DF, UNK
     Route: 065

REACTIONS (2)
  - Death [Fatal]
  - Hepatic cirrhosis [Not Recovered/Not Resolved]
